FAERS Safety Report 6388784-7 (Version None)
Quarter: 2009Q4

REPORT INFORMATION
  Report Type: 
  Country: None (occurrence: None)
  Receive Date: 20091001
  Receipt Date: 20090914
  Transmission Date: 20100525
  Serious: Yes (Death, Other)
  Sender: FDA-Public Use
  Company Number: 2009010148

PATIENT
  Age: 76 Year
  Sex: Male

DRUGS (7)
  1. TREANDA [Suspect]
     Indication: MULTIPLE MYELOMA
     Dosage: SEE IMAGE
     Route: 042
     Dates: start: 20090707, end: 20090709
  2. TREANDA [Suspect]
     Indication: MULTIPLE MYELOMA
     Dosage: SEE IMAGE
     Route: 042
     Dates: start: 20090710, end: 20090712
  3. TREANDA [Suspect]
     Indication: MULTIPLE MYELOMA
     Dosage: SEE IMAGE
     Route: 042
     Dates: start: 20090712, end: 20090714
  4. FASTURTEC [Suspect]
     Dosage: (15 MG, /D) INTRAVENOUS
     Route: 042
     Dates: start: 20090709, end: 20090709
  5. PLAVIX [Concomitant]
  6. VERAPAMIL [Concomitant]
  7. ALLOPURINOL [Concomitant]

REACTIONS (18)
  - AMYOTROPHY [None]
  - AORTIC STENOSIS [None]
  - ARRHYTHMIA [None]
  - ASTHENIA [None]
  - BLOOD CREATININE INCREASED [None]
  - BLOOD URIC ACID INCREASED [None]
  - BONE PAIN [None]
  - CARDIAC ARREST [None]
  - FOAMING AT MOUTH [None]
  - HAEMOGLOBIN DECREASED [None]
  - LEFT VENTRICULAR HYPERTROPHY [None]
  - LOSS OF CONSCIOUSNESS [None]
  - MYOCARDIAL INFARCTION [None]
  - RASH ERYTHEMATOUS [None]
  - SUDDEN DEATH [None]
  - TUMOUR LYSIS SYNDROME [None]
  - VENTRICULAR FIBRILLATION [None]
  - WEIGHT INCREASED [None]
